FAERS Safety Report 8330673-2 (Version None)
Quarter: 2012Q2

REPORT INFORMATION
  Report Type: 
  Country: None (occurrence: None)
  Receive Date: 20120502
  Receipt Date: 20120409
  Transmission Date: 20120825
  Serious: No
  Sender: FDA-Public Use
  Company Number: US-AMGEN-USASP2012021094

PATIENT
  Age: 40 Year
  Sex: Male
  Weight: 90.703 kg

DRUGS (5)
  1. ENBREL [Suspect]
     Indication: PSORIASIS
  2. TRAMADOL HCL [Concomitant]
     Indication: PAIN
     Dosage: 50 MG, PRN
     Route: 048
  3. ENBREL [Suspect]
     Indication: PSORIATIC ARTHROPATHY
     Dosage: 50 MG, QWK
     Route: 058
     Dates: start: 20120228
  4. ZYRTEC [Concomitant]
     Indication: HYPERSENSITIVITY
     Dosage: 10 MG, DAILY
     Route: 048
  5. NAPROXEN (ALEVE) [Concomitant]
     Indication: PAIN
     Dosage: PRN
     Route: 048

REACTIONS (1)
  - PSORIATIC ARTHROPATHY [None]
